FAERS Safety Report 8095782-4 (Version None)
Quarter: 2012Q1

REPORT INFORMATION
  Report Type: 
  Country: None (occurrence: None)
  Receive Date: 20120129
  Receipt Date: 20111227
  Transmission Date: 20120608
  Serious: No
  Sender: FDA-Public Use
  Company Number: US-ABBOTT-11P-163-0886880-00

PATIENT
  Sex: Male
  Weight: 73.548 kg

DRUGS (3)
  1. HUMIRA [Suspect]
     Route: 058
     Dates: start: 20110201
  2. UNKNOWN MEDICATIONS [Concomitant]
     Indication: PRODUCT USED FOR UNKNOWN INDICATION
  3. HUMIRA [Suspect]
     Indication: RHEUMATOID ARTHRITIS
     Route: 058
     Dates: start: 20080101, end: 20100101

REACTIONS (2)
  - DRY MOUTH [None]
  - RHEUMATOID ARTHRITIS [None]
